FAERS Safety Report 9855748 (Version 2)
Quarter: 2014Q1

REPORT INFORMATION
  Report Type: Report from Study
  Country: GB (occurrence: GB)
  Receive Date: 20140130
  Receipt Date: 20140224
  Transmission Date: 20141002
  Serious: Yes (Hospitalization)
  Sender: FDA-Public Use
  Company Number: GB-TEVA-458775ISR

PATIENT
  Age: 47 Year
  Sex: Female

DRUGS (2)
  1. COPAXONE [Suspect]
     Indication: RELAPSING-REMITTING MULTIPLE SCLEROSIS
     Dosage: 20 MILLIGRAM DAILY;
     Route: 058
     Dates: end: 201401
  2. COPAXONE [Suspect]
     Dosage: 20 MILLIGRAM DAILY;
     Route: 058
     Dates: start: 201307, end: 201312

REACTIONS (8)
  - VIIth nerve paralysis [Recovered/Resolved]
  - Paraesthesia [Recovered/Resolved]
  - Migraine [Unknown]
  - Back pain [Not Recovered/Not Resolved]
  - Neck pain [Not Recovered/Not Resolved]
  - Eye pain [Not Recovered/Not Resolved]
  - Cough [Unknown]
  - Malaise [Unknown]
